FAERS Safety Report 19030322 (Version 1)
Quarter: 2021Q1

REPORT INFORMATION
  Report Type: Report from Study
  Country: DE (occurrence: DE)
  Receive Date: 20210319
  Receipt Date: 20210319
  Transmission Date: 20210420
  Serious: Yes (Death)
  Sender: FDA-Public Use
  Company Number: DE-ROCHE-2763361

PATIENT
  Age: 64 Year
  Sex: Male
  Weight: 110 kg

DRUGS (1)
  1. ATEZOLIZUMAB. [Suspect]
     Active Substance: ATEZOLIZUMAB
     Indication: SMALL CELL LUNG CANCER EXTENSIVE STAGE
     Dosage: ON 13/JAN/2021, RECEIVED LAST DOSE OF ATEZOLIZUMAB PRIOR TO EVENT ONSET?ON DAY 1, TO BE REPEATED EVE
     Route: 042
     Dates: start: 20200909

REACTIONS (1)
  - Pneumonitis [Fatal]

NARRATIVE: CASE EVENT DATE: 20210201
